FAERS Safety Report 16651873 (Version 1)
Quarter: 2019Q3

REPORT INFORMATION
  Report Type: Spontaneous
  Country: US (occurrence: US)
  Receive Date: 20190730
  Receipt Date: 20190730
  Transmission Date: 20191004
  Serious: Yes (Life-Threatening, Hospitalization)
  Sender: FDA-Public Use
  Company Number: None

PATIENT
  Age: 70 Year
  Sex: Female
  Weight: 32.7 kg

DRUGS (15)
  1. BELSOMRA [Suspect]
     Active Substance: SUVOREXANT
     Indication: INSOMNIA
     Route: 048
     Dates: start: 20190727
  2. DIPHENHYDRAMINE 25 MG [Concomitant]
  3. MAGNESIUM CITRATE 400 MG [Concomitant]
  4. LEVOTHYROXINE. [Concomitant]
     Active Substance: LEVOTHYROXINE
  5. CHOLECALCIFEROL 1000 UNITS [Concomitant]
  6. GABAPENTIN 200 MG [Concomitant]
  7. ASPIRIN 325 MG [Concomitant]
     Active Substance: ASPIRIN
  8. MEMANTINE 5 MG [Concomitant]
  9. BUPROPION XL 300 MG [Concomitant]
     Active Substance: BUPROPION
  10. ELETRIPTAN 40 MG [Concomitant]
  11. LORAZEPAM 2 MG [Concomitant]
     Active Substance: LORAZEPAM
  12. MELOXICAM 7.5 MG [Concomitant]
     Active Substance: MELOXICAM
  13. ATORVASTATIN 20 MG [Concomitant]
     Active Substance: ATORVASTATIN
  14. RIBOFLAVIN 100 MG [Concomitant]
  15. MAGNESIUM CARBONATE 500 MG [Concomitant]

REACTIONS (4)
  - Paraesthesia [None]
  - Confusional state [None]
  - Therapy change [None]
  - Road traffic accident [None]

NARRATIVE: CASE EVENT DATE: 20190729
